FAERS Safety Report 22334217 (Version 1)
Quarter: 2023Q2

REPORT INFORMATION
  Report Type: Report from Study
  Country: US (occurrence: US)
  Receive Date: 20230517
  Receipt Date: 20230517
  Transmission Date: 20230721
  Serious: Yes (Death, Other)
  Sender: FDA-Public Use
  Company Number: US-GILEAD-2023-0628301

PATIENT

DRUGS (1)
  1. AXICABTAGENE CILOLEUCEL [Suspect]
     Active Substance: AXICABTAGENE CILOLEUCEL
     Indication: Diffuse large B-cell lymphoma
     Dosage: UNK, (BETWEEN 01-JAN-2018 AND 31-DEC-2021)
     Route: 065

REACTIONS (2)
  - Pneumonia [Fatal]
  - Immune effector cell-associated neurotoxicity syndrome [Unknown]
